FAERS Safety Report 4327601-3 (Version None)
Quarter: 2004Q1

REPORT INFORMATION
  Report Type: 
  Country: None (occurrence: None)
  Receive Date: 20040325
  Receipt Date: 20040316
  Transmission Date: 20041129
  Serious: Yes (Death)
  Sender: FDA-Public Use
  Company Number: 2004AP01727

PATIENT
  Age: 76 Year
  Sex: Male

DRUGS (7)
  1. IRESSA [Suspect]
     Indication: LUNG NEOPLASM MALIGNANT
     Dosage: 250  MG DAILY PO
     Route: 048
     Dates: start: 20040309
  2. MAGNESIUM OXIDE [Concomitant]
  3. MUCOSTA [Concomitant]
  4. LEPETAN [Concomitant]
  5. SENNOSIDE [Concomitant]
  6. ENSURE [Concomitant]
  7. DIPYRIDAMOLE [Concomitant]

REACTIONS (2)
  - RESPIRATORY ARREST [None]
  - SUDDEN DEATH [None]
